FAERS Safety Report 15428539 (Version 1)
Quarter: 2018Q3

REPORT INFORMATION
  Report Type: Spontaneous
  Country: US (occurrence: US)
  Receive Date: 20180919
  Receipt Date: 20180919
  Transmission Date: 20181010
  Serious: No
  Sender: FDA-Public Use
  Company Number: None

PATIENT
  Age: 11 Year
  Sex: Female
  Weight: 38.19 kg

DRUGS (2)
  1. ENBREL [Suspect]
     Active Substance: ETANERCEPT
     Indication: AUTOINFLAMMATORY DISEASE
     Route: 058
     Dates: start: 201801
  2. ENBREL [Suspect]
     Active Substance: ETANERCEPT
     Indication: APHTHOUS ULCER

REACTIONS (4)
  - Staphylococcal infection [None]
  - Urinary tract infection [None]
  - Therapy cessation [None]
  - Pharyngitis streptococcal [None]
